FAERS Safety Report 8114256-5 (Version None)
Quarter: 2012Q1

REPORT INFORMATION
  Report Type: 
  Country: None (occurrence: None)
  Receive Date: 20120206
  Receipt Date: 20120201
  Transmission Date: 20120608
  Serious: Yes (Other)
  Sender: FDA-Public Use
  Company Number: GB-SP-2012-01340

PATIENT
  Age: 50 Year
  Sex: Male

DRUGS (1)
  1. IMMUCYST [Suspect]
     Indication: PRODUCT USED FOR UNKNOWN INDICATION
     Dosage: X 7 INSTALATIONS
     Route: 065

REACTIONS (2)
  - VIRAL INFECTION [None]
  - BOVINE TUBERCULOSIS [None]
